FAERS Safety Report 5738051-7 (Version None)
Quarter: 2008Q2

REPORT INFORMATION
  Report Type: 
  Country: None (occurrence: None)
  Receive Date: 20080509
  Receipt Date: 20080205
  Transmission Date: 20081010
  Serious: Yes (Hospitalization)
  Sender: FDA-Public Use
  Company Number: 545508

PATIENT
  Age: 48 Year
  Sex: Female

DRUGS (11)
  1. FUZEON [Suspect]
     Indication: DRUG USE FOR UNKNOWN INDICATION
     Dosage: INTRAVENOUS
     Route: 042
  2. KLONOPIN [Concomitant]
  3. DARUNAVIR (DARUNAVIR) [Concomitant]
  4. MAGNESIUM OXIDE (MAGNESIUM OXIDE) [Concomitant]
  5. TMC 125 (ETRAVIRINE) [Concomitant]
  6. OXYCODONE HCL [Concomitant]
  7. PROTONIX [Concomitant]
  8. RITONAVIR (RITONAVIR) [Concomitant]
  9. STAVUDINE [Concomitant]
  10. BACTRIM [Concomitant]
  11. VANCOMYCIN HYDROCHLORIDE [Concomitant]

REACTIONS (4)
  - ABDOMINAL PAIN [None]
  - DYSPEPSIA [None]
  - INCORRECT ROUTE OF DRUG ADMINISTRATION [None]
  - TREMOR [None]
